FAERS Safety Report 5139721-4 (Version None)
Quarter: 2006Q4

REPORT INFORMATION
  Report Type: 
  Country: None (occurrence: None)
  Receive Date: 20061024
  Receipt Date: 20060914
  Transmission Date: 20070319
  Serious: Yes (Other)
  Sender: FDA-Public Use
  Company Number: 2006SP002392

PATIENT
  Age: 59 Year
  Sex: Male
  Weight: 80 kg

DRUGS (2)
  1. PEG-INTRON (PEGINTERFERONA ALFA-2B)  (PEGINTERFERONA ALFA-2B) [Suspect]
     Indication: HEPATITIS C
     Dosage: 150 MCG
     Dates: end: 20060907
  2. REBETOL [Suspect]
     Indication: HEPATITIS C
     Dosage: 1000 MG
     Dates: end: 20060907

REACTIONS (2)
  - RETINAL DETACHMENT [None]
  - RETINAL TEAR [None]
